FAERS Safety Report 5299684-8 (Version None)
Quarter: 2007Q2

REPORT INFORMATION
  Report Type: 
  Country: None (occurrence: None)
  Receive Date: 20070410
  Receipt Date: 20070329
  Transmission Date: 20071010
  Serious: Yes (Hospitalization)
  Sender: FDA-Public Use
  Company Number: GXKR2007NL03115

PATIENT
  Age: 20 Year
  Sex: Male

DRUGS (4)
  1. PARACETAMOL (NGX)(PARACETAMOL) DISPERSIBLE TABLET [Suspect]
     Dosage: 500 MG, ORAL
     Route: 048
     Dates: start: 20060316, end: 20060319
  2. TRACHITOL (ALUMINIUM POTASSIUM SULFATE, LIDOCAINE HYDROCHLORIDE, PROPY [Concomitant]
  3. HIBITANE (CHLORHEXIDINE GLUCONATE) [Concomitant]
  4. DICLOFENAC (DICLOFENAC) [Concomitant]

REACTIONS (5)
  - ONYCHOLYSIS [None]
  - PHOTOPHOBIA [None]
  - SKIN HYPOPIGMENTATION [None]
  - STEVENS-JOHNSON SYNDROME [None]
  - TOXIC SKIN ERUPTION [None]
